FAERS Safety Report 8369769-8 (Version None)
Quarter: 2012Q2

REPORT INFORMATION
  Report Type: 
  Country: None (occurrence: None)
  Receive Date: 20120518
  Receipt Date: 20120508
  Transmission Date: 20120825
  Serious: Yes (Hospitalization)
  Sender: FDA-Public Use
  Company Number: GB-PFIZER INC-2012112030

PATIENT
  Age: 55 Year
  Sex: Male

DRUGS (6)
  1. MORPHINE SULFATE [Concomitant]
     Dosage: 60 MG, 2X/DAY
     Route: 048
     Dates: start: 20120403
  2. GEMCITABINE [Concomitant]
     Indication: TRANSITIONAL CELL CARCINOMA
     Dosage: 2000 MG, UNK
     Route: 042
     Dates: start: 20120402
  3. SUNITINIB MALATE [Suspect]
     Indication: TRANSITIONAL CELL CARCINOMA
     Dosage: 25 MG, UNK
     Dates: start: 20120403
  4. CISPLATIN [Concomitant]
     Indication: TRANSITIONAL CELL CARCINOMA
     Dosage: 140 MG, UNK
     Route: 042
     Dates: start: 20120402
  5. ZOPICLONE [Concomitant]
     Dosage: 3.75 MG, 1X/DAY
     Dates: start: 20120501
  6. LANSOPRAZOLE [Concomitant]
     Dosage: 30 MG, 1X/DAY
     Dates: start: 20120417

REACTIONS (1)
  - SYNCOPE [None]
